FAERS Safety Report 16852956 (Version 1)
Quarter: 2019Q3

REPORT INFORMATION
  Report Type: Report from Study
  Country: FR (occurrence: FR)
  Receive Date: 20190925
  Receipt Date: 20190925
  Transmission Date: 20191005
  Serious: Yes (Hospitalization, Other)
  Sender: FDA-Public Use
  Company Number: PHHY2019FR219191

PATIENT
  Age: 49 Year
  Sex: Male
  Weight: 71 kg

DRUGS (21)
  1. CERTICAN [Suspect]
     Active Substance: EVEROLIMUS
     Dosage: 2.5 MG, UNK
     Route: 048
     Dates: start: 20150716, end: 20190810
  2. PROGRAF [Concomitant]
     Active Substance: TACROLIMUS\TACROLIMUS ANHYDROUS
     Indication: IMMUNOSUPPRESSION
     Dosage: 7 MG, QD
     Route: 065
     Dates: start: 20140327, end: 20140423
  3. PROGRAF [Concomitant]
     Active Substance: TACROLIMUS\TACROLIMUS ANHYDROUS
     Dosage: 5.5 MG, UNK
     Route: 065
     Dates: start: 20140424, end: 20140826
  4. PROGRAF [Concomitant]
     Active Substance: TACROLIMUS\TACROLIMUS ANHYDROUS
     Dosage: 3 MG, UNK
     Route: 065
     Dates: start: 20141128, end: 20150506
  5. CERTICAN [Suspect]
     Active Substance: EVEROLIMUS
     Indication: LIVER TRANSPLANT
     Dosage: 2 MG, UNK
     Route: 048
     Dates: start: 20150507, end: 20150603
  6. CERTICAN [Suspect]
     Active Substance: EVEROLIMUS
     Dosage: 3.5 MG, UNK
     Route: 048
     Dates: start: 20180705
  7. PROGRAF [Concomitant]
     Active Substance: TACROLIMUS\TACROLIMUS ANHYDROUS
     Dosage: 4.5 MG, UNK
     Route: 065
     Dates: start: 20140919, end: 20141012
  8. PROGRAF [Concomitant]
     Active Substance: TACROLIMUS\TACROLIMUS ANHYDROUS
     Dosage: 4 MG, UNK
     Route: 065
     Dates: start: 20141013, end: 20141127
  9. PROGRAF [Concomitant]
     Active Substance: TACROLIMUS\TACROLIMUS ANHYDROUS
     Dosage: 2 MG, UNK
     Route: 065
     Dates: start: 20150507, end: 20150603
  10. CORTANCYL [Concomitant]
     Active Substance: PREDNISONE
     Dosage: 2 MG, UNK
     Route: 065
     Dates: start: 20140624, end: 20140724
  11. CORTANCYL [Concomitant]
     Active Substance: PREDNISONE
     Dosage: 1 MG, UNK
     Route: 065
     Dates: start: 20140725, end: 20140826
  12. CORTANCYL [Concomitant]
     Active Substance: PREDNISONE
     Dosage: 3 MG, UNK
     Route: 065
     Dates: start: 20140519, end: 20140623
  13. FUROSEMIDE. [Concomitant]
     Active Substance: FUROSEMIDE
     Indication: RENAL FAILURE
     Dosage: 500 MG, UNK
     Route: 065
     Dates: start: 20181013
  14. PROGRAF [Concomitant]
     Active Substance: TACROLIMUS\TACROLIMUS ANHYDROUS
     Dosage: 1.5 MG, UNK
     Route: 065
     Dates: start: 20150604, end: 20150715
  15. CORTANCYL [Concomitant]
     Active Substance: PREDNISONE
     Indication: IMMUNOSUPPRESSION
     Dosage: 4 MG, UNK
     Route: 065
     Dates: start: 20140327, end: 20140518
  16. CELLCEPT [Concomitant]
     Active Substance: MYCOPHENOLATE MOFETIL\MYCOPHENOLATE MOFETIL HYDROCHLORIDE
     Indication: IMMUNOSUPPRESSION
     Dosage: 1000 MG, QD
     Route: 065
     Dates: start: 20150507, end: 20171128
  17. PROGRAF [Concomitant]
     Active Substance: TACROLIMUS\TACROLIMUS ANHYDROUS
     Dosage: 5 MG, UNK
     Route: 065
     Dates: start: 20140827, end: 20140918
  18. CERTICAN [Suspect]
     Active Substance: EVEROLIMUS
     Dosage: 3 MG, UNK
     Route: 048
     Dates: start: 20150604, end: 20150715
  19. CERTICAN [Suspect]
     Active Substance: EVEROLIMUS
     Dosage: 3 MG, UNK
     Route: 048
     Dates: start: 20150811, end: 20180704
  20. CERTICAN [Suspect]
     Active Substance: EVEROLIMUS
     Dosage: 1.5 OT X 2, UNK
     Route: 048
     Dates: start: 20180916
  21. HEPARIN [Concomitant]
     Active Substance: HEPARIN SODIUM
     Indication: PULMONARY INFARCTION
     Dosage: UNK UNK, TID
     Route: 065
     Dates: start: 20171221, end: 20180126

REACTIONS (6)
  - Cholangitis [Recovering/Resolving]
  - Inflammation [Recovering/Resolving]
  - Anaemia [Recovering/Resolving]
  - Haemoglobin decreased [Unknown]
  - Erysipelas [Recovered/Resolved]
  - Septic shock [Unknown]

NARRATIVE: CASE EVENT DATE: 20180918
